FAERS Safety Report 5487661-3 (Version None)
Quarter: 2007Q4

REPORT INFORMATION
  Report Type: 
  Country: None (occurrence: None)
  Receive Date: 20071017
  Receipt Date: 20071010
  Transmission Date: 20080405
  Serious: Yes (Other)
  Sender: FDA-Public Use
  Company Number: PHBS2007JP16936

PATIENT
  Age: 21 Year
  Sex: Female

DRUGS (1)
  1. CYCLOSPORINE [Suspect]
     Indication: BONE MARROW TRANSPLANT
     Route: 065

REACTIONS (3)
  - GLOMERULONEPHRITIS PROLIFERATIVE [None]
  - GRAFT VERSUS HOST DISEASE [None]
  - NEPHROTIC SYNDROME [None]
